FAERS Safety Report 6918959-7 (Version None)
Quarter: 2010Q3

REPORT INFORMATION
  Report Type: 
  Country: None (occurrence: None)
  Receive Date: 20100726
  Receipt Date: 20090626
  Transmission Date: 20110219
  Serious: No
  Sender: FDA-Public Use
  Company Number: 2009-00270

PATIENT
  Sex: Male

DRUGS (2)
  1. ZICAM COLD REMEDY NASAL GEL [Suspect]
     Indication: NASOPHARYNGITIS
  2. ZICAM COLD REMEDY NASAL GEL [Suspect]
     Indication: NASOPHARYNGITIS

REACTIONS (2)
  - AGEUSIA [None]
  - ANOSMIA [None]
